FAERS Safety Report 8557020 (Version 9)
Quarter: 2014Q1

REPORT INFORMATION
  Report Type: Spontaneous
  Country: US (occurrence: US)
  Receive Date: 20120511
  Receipt Date: 20140331
  Transmission Date: 20141002
  Serious: No
  Sender: FDA-Public Use
  Company Number: US-PFIZER INC-2012113615

PATIENT
  Age: 74 Year
  Sex: Male
  Weight: 91.61 kg

DRUGS (11)
  1. SUTENT [Suspect]
     Indication: RENAL CELL CARCINOMA
     Dosage: 50 MG, DAILY, 4 WEEKS ON AND THEN 2 WEEKS OFF
     Route: 048
     Dates: start: 20120424
  2. SUTENT [Suspect]
     Dosage: 25 MG, 1X/DAY
     Route: 048
     Dates: start: 20120511, end: 20140324
  3. SIMVASTATIN [Concomitant]
     Indication: BLOOD CHOLESTEROL INCREASED
     Dosage: 40 MG, 1X/DAY
  4. (FLOMAX) TAMSULOSIN [Concomitant]
     Indication: PROSTATIC DISORDER
     Dosage: 0.4 MG, UNK
  5. VERAPAMIL [Concomitant]
     Indication: HYPERTENSION
     Dosage: 100 MG, UNK
  6. VERAPAMIL [Concomitant]
     Dosage: 120 MG, 2X/DAY  (TWO TABLETS OF 120MG EACH)
  7. LOSARTAN [Concomitant]
     Indication: HYPERTENSION
     Dosage: 50 MG, UNK
  8. ADVAIR [Concomitant]
     Indication: CHRONIC OBSTRUCTIVE PULMONARY DISEASE
     Dosage: ONE INHALE TWO TIMES A DAY
  9. OXYGEN [Concomitant]
     Indication: CHRONIC OBSTRUCTIVE PULMONARY DISEASE
     Dosage: AS NEEDED
  10. ASPIRIN [Concomitant]
     Dosage: 81 MG, UNK
  11. SAW PALMETTO [Concomitant]
     Dosage: UNK

REACTIONS (21)
  - Pain in extremity [Not Recovered/Not Resolved]
  - Hypertension [Not Recovered/Not Resolved]
  - Saliva altered [Not Recovered/Not Resolved]
  - Palmar-plantar erythrodysaesthesia syndrome [Unknown]
  - Skin ulcer [Recovering/Resolving]
  - Hyperkeratosis [Recovering/Resolving]
  - Blister [Unknown]
  - Pain [Unknown]
  - Dizziness [Unknown]
  - Epistaxis [Unknown]
  - Mouth haemorrhage [Unknown]
  - Burning sensation [Unknown]
  - Vomiting [Unknown]
  - Headache [Unknown]
  - Dry skin [Unknown]
  - Arthropathy [Unknown]
  - Skin exfoliation [Unknown]
  - Movement disorder [Unknown]
  - Limb discomfort [Unknown]
  - Skin hypertrophy [Unknown]
  - Blood pressure decreased [Unknown]
